FAERS Safety Report 5981494-7 (Version None)
Quarter: 2008Q4

REPORT INFORMATION
  Report Type: 
  Country: None (occurrence: None)
  Receive Date: 20081205
  Receipt Date: 20081125
  Transmission Date: 20090506
  Serious: Yes (Hospitalization)
  Sender: FDA-Public Use
  Company Number: FR-ABBOTT-08P-056-0435050-01

PATIENT
  Sex: Male
  Weight: 84 kg

DRUGS (6)
  1. HUMIRA [Suspect]
     Indication: RHEUMATOID ARTHRITIS
     Route: 058
     Dates: start: 20040528
  2. COMMERCIAL HUMIRA [Concomitant]
     Indication: RHEUMATOID ARTHRITIS
     Dates: start: 20031113
  3. ATENOLOL [Concomitant]
     Indication: CARDIAC DISORDER
  4. PERINDOPRIL [Concomitant]
     Indication: HYPERTENSION
  5. ATORVASTATIN CALCIUM [Concomitant]
     Indication: BLOOD CHOLESTEROL
  6. TAMSULOSIN HCL [Concomitant]
     Indication: PROSTATIC ADENOMA

REACTIONS (1)
  - RHEUMATOID NODULE [None]
